FAERS Safety Report 18638472 (Version 1)
Quarter: 2020Q4

REPORT INFORMATION
  Report Type: Spontaneous
  Country: US (occurrence: US)
  Receive Date: 20201219
  Receipt Date: 20201219
  Transmission Date: 20210114
  Serious: Yes (Other)
  Sender: FDA-Public Use
  Company Number: US-009507513-2012USA008616

PATIENT
  Sex: Female

DRUGS (2)
  1. KEYTRUDA [Suspect]
     Active Substance: PEMBROLIZUMAB
     Indication: TRIPLE NEGATIVE BREAST CANCER
     Dosage: FIRST CYCLE
  2. KEYTRUDA [Suspect]
     Active Substance: PEMBROLIZUMAB
     Dosage: SECOND CYCLE

REACTIONS (5)
  - Skin necrosis [Recovered/Resolved]
  - Thyroiditis [Unknown]
  - Off label use [Unknown]
  - Granulomatous dermatitis [Recovered/Resolved]
  - Granuloma annulare [Recovered/Resolved]
